FAERS Safety Report 7772279-X (Version None)
Quarter: 2011Q3

REPORT INFORMATION
  Report Type: 
  Country: None (occurrence: None)
  Receive Date: 20110922
  Receipt Date: 20110511
  Transmission Date: 20111222
  Serious: Yes (Other)
  Sender: FDA-Public Use
  Company Number: US-ASTRAZENECA-2011SE28155

PATIENT
  Age: 43 Year
  Sex: Female

DRUGS (2)
  1. PROZAC [Concomitant]
  2. SEROQUEL XR [Suspect]
     Indication: MAJOR DEPRESSION
     Route: 048

REACTIONS (4)
  - ENDOSCOPY UPPER GASTROINTESTINAL TRACT [None]
  - CONSTIPATION [None]
  - COLONOSCOPY [None]
  - COMPUTERISED TOMOGRAM [None]
